FAERS Safety Report 16739654 (Version 1)
Quarter: 2019Q3

REPORT INFORMATION
  Report Type: Report from Study
  Country: IT (occurrence: IT)
  Receive Date: 20190826
  Receipt Date: 20190826
  Transmission Date: 20191005
  Serious: Yes (Hospitalization)
  Sender: FDA-Public Use
  Company Number: IT-TEVA-2019-IT-1095375

PATIENT
  Age: 79 Year
  Sex: Female

DRUGS (11)
  1. CLEXANE T [Suspect]
     Active Substance: ENOXAPARIN SODIUM
     Indication: VENOUS THROMBOSIS LIMB
     Route: 058
     Dates: start: 20171001, end: 20180301
  2. FUROSEMIDE MYLAN GENERICS 25 MG COMPRESSE [Concomitant]
     Active Substance: FUROSEMIDE
  3. CARDICOR 1,25 MG COMPRESSE RIVESTITE CON FILM [Concomitant]
     Active Substance: BISOPROLOL FUMARATE
  4. CLEXANE [Suspect]
     Active Substance: ENOXAPARIN SODIUM
     Indication: VENOUS THROMBOSIS LIMB
     Route: 058
     Dates: start: 20180302, end: 20180307
  5. CERCHIO 10 MG COMPRESSE [Concomitant]
     Dates: start: 20180303, end: 20180305
  6. LEDERFOLIN 7,5 MG COMPRESSE [Concomitant]
  7. MYCOSTATIN 100.000 U.I./ML SOSPENSIONE ORALE [Concomitant]
     Dates: start: 20180305, end: 20180313
  8. METHOTREXATE. [Suspect]
     Active Substance: METHOTREXATE
     Indication: RHEUMATOID ARTHRITIS
     Dates: end: 20171130
  9. PANTORC [Concomitant]
     Active Substance: PANTOPRAZOLE SODIUM
  10. PIPERACILLINA SODICA/TAZOBACTAM SODICO [Concomitant]
     Active Substance: PIPERACILLIN SODIUM\TAZOBACTAM SODIUM
     Dates: start: 20180301, end: 20180306
  11. APROVEL 150 MG TABLETS [Concomitant]
     Active Substance: IRBESARTAN

REACTIONS (3)
  - Thrombocytopenia [Recovering/Resolving]
  - Petechiae [Recovering/Resolving]
  - Anaemia [Recovering/Resolving]

NARRATIVE: CASE EVENT DATE: 20180307
